FAERS Safety Report 23311567 (Version 3)
Quarter: 2023Q4

REPORT INFORMATION
  Report Type: Other
  Country: EG (occurrence: None)
  Receive Date: 20231219
  Receipt Date: 20231226
  Transmission Date: 20240110
  Serious: No
  Sender: FDA-Public Use
  Company Number: EG-ROCHE-3477812

PATIENT
  Age: 40 Year
  Sex: Female
  Weight: 70 kg

DRUGS (1)
  1. OCREVUS [Suspect]
     Active Substance: OCRELIZUMAB
     Indication: Multiple sclerosis
     Route: 042
     Dates: start: 20231130

REACTIONS (3)
  - Influenza [Not Recovered/Not Resolved]
  - Inappropriate schedule of product administration [Unknown]
  - Pyrexia [Unknown]

NARRATIVE: CASE EVENT DATE: 20231130
